FAERS Safety Report 6132208-1 (Version None)
Quarter: 2009Q1

REPORT INFORMATION
  Report Type: 
  Country: None (occurrence: None)
  Receive Date: 20090323
  Receipt Date: 20080923
  Transmission Date: 20090719
  Serious: Yes (Life-Threatening)
  Sender: FDA-Public Use
  Company Number: 2008EU002023

PATIENT
  Age: 29 Year
  Sex: Male

DRUGS (3)
  1. PROGRAF [Suspect]
     Indication: RENAL TRANSPLANT
  2. MYCOPHENOLATE MOFETIL [Concomitant]
     Indication: RENAL TRANSPLANT
  3. CORTICOSTEROID NOS(CORTICOSTEROID NOS) [Suspect]
     Indication: RENAL TRANSPLANT

REACTIONS (11)
  - BLOOD CREATININE INCREASED [None]
  - BLOOD TRIGLYCERIDES INCREASED [None]
  - COMPLICATIONS OF TRANSPLANTED KIDNEY [None]
  - CYTOMEGALOVIRUS ANTIGEN POSITIVE [None]
  - HAEMODIALYSIS [None]
  - HISTIOCYTOSIS HAEMATOPHAGIC [None]
  - KIDNEY TRANSPLANT REJECTION [None]
  - PANCYTOPENIA [None]
  - POLYOMAVIRUS-ASSOCIATED NEPHROPATHY [None]
  - PYREXIA [None]
  - SERUM FERRITIN INCREASED [None]
